FAERS Safety Report 10228555 (Version 1)
Quarter: 2014Q2

REPORT INFORMATION
  Report Type: Spontaneous
  Country: JP (occurrence: JP)
  Receive Date: 20140610
  Receipt Date: 20140610
  Transmission Date: 20141212
  Serious: Yes (Hospitalization, Other)
  Sender: FDA-Public Use
  Company Number: PHHY2014JP070185

PATIENT
  Age: 72 Year
  Sex: Male

DRUGS (4)
  1. RIFAMPICIN SANDOZ [Suspect]
  2. ISONIAZID [Suspect]
  3. ETHAMBUTOL [Suspect]
  4. PYRAZINAMIDE [Suspect]

REACTIONS (3)
  - Hepatic function abnormal [Recovering/Resolving]
  - Erythema [Recovering/Resolving]
  - Pustular psoriasis [Unknown]
